FAERS Safety Report 8734053 (Version 2)
Quarter: 2012Q4

REPORT INFORMATION
  Report Type: Report from Study
  Country: US (occurrence: US)
  Receive Date: 20120821
  Receipt Date: 20121002
  Transmission Date: 20130627
  Serious: Yes (Hospitalization)
  Sender: FDA-Public Use
  Company Number: US-ACTELION-A-NJ2012-70305

PATIENT
  Age: 53 Year
  Sex: Female

DRUGS (3)
  1. VENTAVIS [Suspect]
     Indication: PULMONARY ARTERIAL HYPERTENSION
     Dosage: 5 mcg, 6 times/day
     Route: 055
  2. ADVAIR [Concomitant]
  3. SPIRIVA [Concomitant]

REACTIONS (1)
  - Chronic obstructive pulmonary disease [Recovering/Resolving]
